FAERS Safety Report 17899618 (Version 1)
Quarter: 2020Q2

REPORT INFORMATION
  Report Type: Other
  Country: HU (occurrence: HU)
  Receive Date: 20200616
  Receipt Date: 20200616
  Transmission Date: 20200714
  Serious: Yes (Death)
  Sender: FDA-Public Use
  Company Number: HU-DEXPHARM-20200493

PATIENT
  Age: 42 Year
  Sex: Male

DRUGS (7)
  1. PREGABALIN. [Interacting]
     Active Substance: PREGABALIN
  2. NORTRIPTYLINE [Interacting]
     Active Substance: NORTRIPTYLINE
  3. VENLAFAXINE [Suspect]
     Active Substance: VENLAFAXINE HYDROCHLORIDE
  4. AMITRIPTYLINE [Interacting]
     Active Substance: AMITRIPTYLINE
  5. NORDIAZEPAM [Interacting]
     Active Substance: NORDAZEPAM
  6. DIAZEPAM. [Interacting]
     Active Substance: DIAZEPAM
  7. NAPROXEN. [Interacting]
     Active Substance: NAPROXEN

REACTIONS (2)
  - Overdose [Fatal]
  - Drug interaction [Fatal]
